FAERS Safety Report 5593925-5 (Version None)
Quarter: 2008Q1

REPORT INFORMATION
  Report Type: 
  Country: None (occurrence: None)
  Receive Date: 20080116
  Receipt Date: 20080108
  Transmission Date: 20080703
  Serious: Yes (Hospitalization)
  Sender: FDA-Public Use
  Company Number: BE-GENENTECH-253929

PATIENT
  Sex: Female
  Weight: 81 kg

DRUGS (3)
  1. BEVACIZUMAB [Suspect]
     Indication: NON-SMALL CELL LUNG CANCER
     Dosage: 1275 MG, Q3W
     Route: 042
     Dates: start: 20071217
  2. CISPLATIN [Suspect]
     Indication: NON-SMALL CELL LUNG CANCER
     Dosage: 160 MG, UNKNOWN
     Route: 042
     Dates: start: 20071217
  3. GEMCITABINE [Suspect]
     Indication: NON-SMALL CELL LUNG CANCER
     Dosage: 2498 MG, UNKNOWN
     Route: 042
     Dates: start: 20071217

REACTIONS (1)
  - GENERAL PHYSICAL HEALTH DETERIORATION [None]
